FAERS Safety Report 7579019-8 (Version None)
Quarter: 2011Q2

REPORT INFORMATION
  Report Type: 
  Country: None (occurrence: None)
  Receive Date: 20110628
  Receipt Date: 20110624
  Transmission Date: 20111010
  Serious: Yes (Hospitalization)
  Sender: FDA-Public Use
  Company Number: FR-PFIZER INC-2011140506

PATIENT
  Age: 48 Year
  Sex: Female

DRUGS (1)
  1. VARENICLINE TARTRATE [Suspect]
     Indication: SMOKING CESSATION THERAPY
     Dosage: 1 MG, 2X/DAY
     Route: 048
     Dates: start: 20081127, end: 20090201

REACTIONS (6)
  - AGITATION [None]
  - CONFUSIONAL STATE [None]
  - ACUTE PSYCHOSIS [None]
  - BIPOLAR DISORDER [None]
  - ASTHENIA [None]
  - SLEEP DISORDER [None]
